FAERS Safety Report 6687594-0 (Version None)
Quarter: 2010Q2

REPORT INFORMATION
  Report Type: 
  Country: None (occurrence: None)
  Receive Date: 20100416
  Receipt Date: 20100416
  Transmission Date: 20101027
  Serious: No
  Sender: FDA-Public Use
  Company Number: None

PATIENT
  Age: 55 Year
  Sex: Female
  Weight: 51.2565 kg

DRUGS (1)
  1. ALENDRONATE SODIUM [Suspect]
     Indication: OSTEOPOROSIS
     Dosage: ONE DOSE JANUARY 2010
     Dates: start: 20100101

REACTIONS (5)
  - CHOKING SENSATION [None]
  - DYSPHAGIA [None]
  - OROPHARYNGEAL PAIN [None]
  - PAIN [None]
  - PRODUCT SUBSTITUTION ISSUE [None]
